FAERS Safety Report 9164156 (Version 2)
Quarter: 2013Q4

REPORT INFORMATION
  Report Type: Spontaneous
  Country: AR (occurrence: AR)
  Receive Date: 20130315
  Receipt Date: 20131120
  Transmission Date: 20140711
  Serious: Yes (Hospitalization)
  Sender: FDA-Public Use
  Company Number: AR-AMGEN-ARGSP2013017913

PATIENT
  Age: 66 Year
  Sex: Female

DRUGS (1)
  1. ENBREL [Suspect]
     Indication: RHEUMATOID ARTHRITIS
     Dosage: 50 MG, 1X/10 DAYS
     Route: 065
     Dates: start: 20100728, end: 201110

REACTIONS (2)
  - Chronic obstructive pulmonary disease [Recovered/Resolved]
  - Decreased immune responsiveness [Unknown]
